FAERS Safety Report 25261540 (Version 2)
Quarter: 2025Q2

REPORT INFORMATION
  Report Type: Report from Study
  Country: CA (occurrence: CA)
  Receive Date: 20250501
  Receipt Date: 20250611
  Transmission Date: 20250717
  Serious: Yes (Hospitalization, Other)
  Sender: ABBVIE
  Company Number: CA-ABBVIE-6262516

PATIENT
  Age: 28 Year
  Sex: Male

DRUGS (1)
  1. RINVOQ [Suspect]
     Active Substance: UPADACITINIB
     Indication: Dermatitis atopic
     Dosage: FORM STRENGTH: 30 MILLIGRAM
     Route: 048
     Dates: start: 20240131, end: 20250327

REACTIONS (10)
  - Sepsis [Recovered/Resolved]
  - Infective tenosynovitis [Unknown]
  - Asthenia [Unknown]
  - Pyrexia [Unknown]
  - Abdominal pain [Unknown]
  - COVID-19 [Unknown]
  - Hypotension [Unknown]
  - Renal failure [Unknown]
  - Anaemia [Unknown]
  - Malaise [Unknown]

NARRATIVE: CASE EVENT DATE: 20250327
